FAERS Safety Report 14803786 (Version 1)
Quarter: 2018Q2

REPORT INFORMATION
  Report Type: Spontaneous
  Country: NL (occurrence: NL)
  Receive Date: 20180425
  Receipt Date: 20180425
  Transmission Date: 20180711
  Serious: Yes (Other)
  Sender: FDA-Public Use
  Company Number: NL-TEVA-2018-NL-886031

PATIENT
  Sex: Male

DRUGS (1)
  1. METHOTREXATE. [Suspect]
     Active Substance: METHOTREXATE
     Dosage: INJECTIE, 50 MG/ML (MILLIGRAM PER MILLILITER)INJEXATE INJVLST 20MG/0,4ML (50MG/ML) WWSP

REACTIONS (1)
  - Therapeutic response unexpected [Unknown]
